FAERS Safety Report 23565041 (Version 3)
Quarter: 2024Q1

REPORT INFORMATION
  Report Type: Spontaneous
  Country: US (occurrence: US)
  Receive Date: 20240226
  Receipt Date: 20240321
  Transmission Date: 20240409
  Serious: Yes (Hospitalization, Other)
  Sender: FDA-Public Use
  Company Number: US-GSK-US2024021266

PATIENT
  Age: 62 Year
  Sex: Female

DRUGS (11)
  1. LAMOTRIGINE [Suspect]
     Active Substance: LAMOTRIGINE
     Indication: Epilepsy
     Dosage: 300 MG, BID (LAMOTRIGINE XR)
     Dates: start: 201701
  2. LAMICTAL XR [Suspect]
     Active Substance: LAMOTRIGINE
     Indication: Seizure
     Dosage: 300 MG, BID
  3. XCOPRI [Suspect]
     Active Substance: CENOBAMATE
     Indication: Seizure
     Dosage: 200 MG, QD
  4. CLONAZEPAM [Suspect]
     Active Substance: CLONAZEPAM
     Indication: Seizure
     Dosage: 5 MG, BID
  5. METOPROLOL [Suspect]
     Active Substance: METOPROLOL
     Indication: Hypertension
     Dosage: 50 MG, QD
  6. NAPROXEN [Suspect]
     Active Substance: NAPROXEN
     Indication: Product used for unknown indication
     Dosage: 500 MG, BID,WHEN NEED
  7. VITAMIN E [Suspect]
     Active Substance: .ALPHA.-TOCOPHEROL
     Indication: Hypovitaminosis
     Dosage: UNK, QD
  8. ATORVASTATIN [Suspect]
     Active Substance: ATORVASTATIN
     Indication: Blood cholesterol
     Dosage: 400 MG, QD
  9. METFORMIN [Suspect]
     Active Substance: METFORMIN HYDROCHLORIDE
     Indication: Glucose tolerance impaired
     Dosage: UNK, QD
  10. TOBRAMYCIN AND DEXAMETHASONE [Suspect]
     Active Substance: DEXAMETHASONE\TOBRAMYCIN
     Indication: Product used for unknown indication
     Dosage: 5 MG, QID, ONE DROP IN BOTH EYES
  11. TRIAMCINOLONE ACETONIDE [Suspect]
     Active Substance: TRIAMCINOLONE ACETONIDE
     Indication: Skin irritation
     Dosage: 30 MG, BID,APPLY TO AFFECTED AREA

REACTIONS (9)
  - Seizure [Recovered/Resolved]
  - Fall [Recovered/Resolved]
  - Tooth injury [Unknown]
  - Urticaria [Unknown]
  - Pruritus [Unknown]
  - Skin burning sensation [Unknown]
  - Muscle strain [Unknown]
  - Face injury [Unknown]
  - Head injury [Unknown]

NARRATIVE: CASE EVENT DATE: 20230801
